FAERS Safety Report 20643494 (Version 1)
Quarter: 2022Q1

REPORT INFORMATION
  Report Type: Spontaneous
  Country: US (occurrence: None)
  Receive Date: 20220325
  Receipt Date: 20220325
  Transmission Date: 20220423
  Serious: No
  Sender: FDA-Public Use
  Company Number: None

PATIENT
  Age: 60 Year
  Sex: Female

DRUGS (1)
  1. CAPECITABINE [Suspect]
     Active Substance: CAPECITABINE
     Dosage: 2500MG BID ORAL?
     Route: 048
     Dates: start: 202105

REACTIONS (3)
  - Gingival recession [None]
  - Abscess oral [None]
  - Therapy interrupted [None]

NARRATIVE: CASE EVENT DATE: 20220325
